FAERS Safety Report 5511656-4 (Version None)
Quarter: 2007Q4

REPORT INFORMATION
  Report Type: 
  Country: None (occurrence: None)
  Receive Date: 20071109
  Receipt Date: 20071026
  Transmission Date: 20080405
  Serious: Yes (Other)
  Sender: FDA-Public Use
  Company Number: DE-RANBAXY-2007RR-11183

PATIENT

DRUGS (2)
  1. OFLOX 100MG BASICS [Suspect]
     Indication: RENAL DISORDER
     Dosage: 200 MG, UNK
     Route: 048
  2. OFLOX 100MG BASICS [Suspect]
     Dosage: 100 MG, UNK
     Route: 048

REACTIONS (7)
  - DIZZINESS [None]
  - EPISTAXIS [None]
  - FACE OEDEMA [None]
  - HEARING IMPAIRED [None]
  - JOINT STIFFNESS [None]
  - TACHYCARDIA [None]
  - VISUAL DISTURBANCE [None]
